FAERS Safety Report 14946743 (Version 1)
Quarter: 2018Q2

REPORT INFORMATION
  Report Type: Report from Study
  Country: US (occurrence: US)
  Receive Date: 20180529
  Receipt Date: 20180529
  Transmission Date: 20180711
  Serious: Yes (Other)
  Sender: FDA-Public Use
  Company Number: US-JNJFOC-20180528832

PATIENT
  Sex: Male

DRUGS (35)
  1. DICLOFENAC SODIUM. [Concomitant]
     Active Substance: DICLOFENAC SODIUM
  2. MAXALT [Concomitant]
     Active Substance: RIZATRIPTAN BENZOATE
  3. PREDNISONE. [Concomitant]
     Active Substance: PREDNISONE
  4. KLOR-CON [Concomitant]
     Active Substance: POTASSIUM CHLORIDE
  5. LORAZEPAM. [Concomitant]
     Active Substance: LORAZEPAM
  6. CENTRUM [Concomitant]
     Active Substance: VITAMINS
  7. COZAAR [Concomitant]
     Active Substance: LOSARTAN POTASSIUM
  8. METHERGINE [Concomitant]
     Active Substance: METHYLERGONOVINE MALEATE
  9. DIPHENHYDRAMINE. [Concomitant]
     Active Substance: DIPHENHYDRAMINE
  10. HEPARIN [Concomitant]
     Active Substance: HEPARIN SODIUM
  11. HYDROCORTISONE. [Concomitant]
     Active Substance: HYDROCORTISONE
  12. SENNA [Concomitant]
     Active Substance: SENNA LEAF\SENNOSIDES\SENNOSIDES A AND B
  13. ZOVIRAX [Concomitant]
     Active Substance: ACYCLOVIR
  14. AMILORIDE [Concomitant]
     Active Substance: AMILORIDE
  15. PROTONIX [Concomitant]
     Active Substance: PANTOPRAZOLE SODIUM
  16. PROVENTIL [Concomitant]
     Active Substance: ALBUTEROL
  17. TOPAMAX [Concomitant]
     Active Substance: TOPIRAMATE
  18. IMBRUVICA [Suspect]
     Active Substance: IBRUTINIB
     Indication: NON-HODGKIN^S LYMPHOMA
     Route: 048
     Dates: start: 20180427
  19. GAMUNEX-C [Concomitant]
     Active Substance: HUMAN IMMUNOGLOBULIN G
  20. PENTAMIDINE [Concomitant]
     Active Substance: PENTAMIDINE
  21. BUDESONIDE. [Concomitant]
     Active Substance: BUDESONIDE
  22. IMBRUVICA [Suspect]
     Active Substance: IBRUTINIB
     Indication: NON-HODGKIN^S LYMPHOMA
     Route: 048
     Dates: start: 20180322
  23. IMBRUVICA [Suspect]
     Active Substance: IBRUTINIB
     Indication: CHRONIC LYMPHOCYTIC LEUKAEMIA
     Route: 048
     Dates: start: 20180427
  24. MECLIZINE [Concomitant]
     Active Substance: MECLIZINE HYDROCHLORIDE
  25. METFORMIN [Concomitant]
     Active Substance: METFORMIN HYDROCHLORIDE
  26. CYCLOBENZAPRINE. [Concomitant]
     Active Substance: CYCLOBENZAPRINE
  27. INDOMETHACIN. [Concomitant]
     Active Substance: INDOMETHACIN
  28. MORPHINE [Concomitant]
     Active Substance: MORPHINE
  29. ONDANSETRON [Concomitant]
     Active Substance: ONDANSETRON
  30. ALBUTEROL. [Concomitant]
     Active Substance: ALBUTEROL
  31. IMBRUVICA [Suspect]
     Active Substance: IBRUTINIB
     Indication: CHRONIC LYMPHOCYTIC LEUKAEMIA
     Route: 048
     Dates: start: 20180322
  32. BENZONATATE. [Concomitant]
     Active Substance: BENZONATATE
  33. GABAPENTIN. [Concomitant]
     Active Substance: GABAPENTIN
  34. BUMETANIDE. [Concomitant]
     Active Substance: BUMETANIDE
  35. ZITHROMAX [Concomitant]
     Active Substance: AZITHROMYCIN DIHYDRATE

REACTIONS (1)
  - Foot fracture [Unknown]
